FAERS Safety Report 9029026 (Version 1)
Quarter: 2013Q1

REPORT INFORMATION
  Report Type: Spontaneous
  Country: US (occurrence: US)
  Receive Date: 20130122
  Receipt Date: 20130122
  Transmission Date: 20140127
  Serious: Yes (Hospitalization)
  Sender: FDA-Public Use
  Company Number: US-ASTRAZENECA-2013SE03272

PATIENT
  Age: 42 Year
  Sex: Male
  Weight: 77.1 kg

DRUGS (2)
  1. SEROQUEL [Suspect]
     Indication: SLEEP DISORDER
     Route: 048
     Dates: start: 2011
  2. ZYPREXA [Concomitant]
     Indication: SLEEP DISORDER

REACTIONS (12)
  - Dysphonia [Unknown]
  - Fall [Unknown]
  - Heart rate increased [Unknown]
  - Dyspnoea [Unknown]
  - Blood glucose decreased [Unknown]
  - Blood calcium decreased [Unknown]
  - Feeling abnormal [Unknown]
  - Agitation [Unknown]
  - Logorrhoea [Unknown]
  - Fatigue [Unknown]
  - Asthenia [Unknown]
  - Expired drug administered [Unknown]
